FAERS Safety Report 8848320 (Version 1)
Quarter: 2012Q4

REPORT INFORMATION
  Report Type: 
  Country: US (occurrence: US)
  Receive Date: 20121019
  Receipt Date: 20121019
  Transmission Date: 20130627
  Serious: Yes (Other)
  Sender: FDA-Public Use
  Company Number: US-MYLANLABS-2012S1021133

PATIENT
  Age: 18 Year
  Sex: Male

DRUGS (1)
  1. MORPHINE [Suspect]
     Indication: DRUG ABUSE
     Dosage: Snorted 2 lines of crushed morphine tablets
     Route: 045

REACTIONS (7)
  - Mental status changes [Recovered/Resolved]
  - Deafness [Recovered/Resolved]
  - Hypotension [Recovered/Resolved]
  - Tachycardia [Recovered/Resolved]
  - Renal impairment [Recovered/Resolved]
  - Troponin increased [Recovered/Resolved]
  - Transaminases increased [Recovered/Resolved]
